FAERS Safety Report 11065783 (Version 2)
Quarter: 2015Q3

REPORT INFORMATION
  Report Type: Spontaneous
  Country: US (occurrence: None)
  Receive Date: 20150423
  Receipt Date: 20150702
  Transmission Date: 20151125
  Serious: Yes (Hospitalization, Other)
  Sender: FDA-Public Use
  Company Number: ZYD-15-AE-136

PATIENT
  Age: 45 Year
  Sex: Female

DRUGS (2)
  1. LEVOTHYROXINE. [Concomitant]
     Active Substance: LEVOTHYROXINE
  2. DULOXETINE. [Suspect]
     Active Substance: DULOXETINE
     Indication: DEPRESSION
     Dosage: 43 CAPSULES
     Route: 048
     Dates: end: 20150409

REACTIONS (7)
  - Peripheral coldness [None]
  - Catatonia [None]
  - Oedema peripheral [None]
  - Condition aggravated [None]
  - Seizure [None]
  - Amnesia [None]
  - Flat affect [None]

NARRATIVE: CASE EVENT DATE: 201503
